FAERS Safety Report 5615334-2 (Version None)
Quarter: 2008Q1

REPORT INFORMATION
  Report Type: 
  Country: None (occurrence: None)
  Receive Date: 20080201
  Receipt Date: 20080123
  Transmission Date: 20080703
  Serious: Yes (Other)
  Sender: FDA-Public Use
  Company Number: 2008US000323

PATIENT
  Age: 63 Year
  Sex: Female

DRUGS (5)
  1. PROGRAF [Suspect]
     Indication: PANCREAS ISLET CELL TRANSPLANT
     Dosage: 1 MG,
  2. SIROLIMUS(SIROLIMUS) [Suspect]
     Indication: PANCREAS ISLET CELL TRANSPLANT
     Dosage: 0.2 MG/KG,
  3. MYCOPHENOLATE MOFETIL [Concomitant]
  4. DACLIZUMAB (DACLIZUMAB) [Concomitant]
  5. ENBREL [Concomitant]

REACTIONS (6)
  - ANAEMIA [None]
  - APHTHOUS STOMATITIS [None]
  - DEHYDRATION [None]
  - GASTROENTERITIS [None]
  - RENAL DISORDER [None]
  - RENAL FAILURE ACUTE [None]
